FAERS Safety Report 10629061 (Version 1)
Quarter: 2014Q4

REPORT INFORMATION
  Report Type: Spontaneous
  Country: US (occurrence: US)
  Receive Date: 20141205
  Receipt Date: 20141205
  Transmission Date: 20150529
  Serious: No
  Sender: FDA-Public Use
  Company Number: US-BRISTOL-MYERS SQUIBB COMPANY-21601083

PATIENT
  Age: 44 Year
  Sex: Female

DRUGS (2)
  1. ABACAVIR SULFATE+ZIDOVUDINE+LAMIVUDINE [Suspect]
     Active Substance: ABACAVIR SULFATE\LAMIVUDINE\ZIDOVUDINE
  2. SUSTIVA [Suspect]
     Active Substance: EFAVIRENZ
     Indication: HIV TEST
     Route: 048

REACTIONS (2)
  - Erythema [Unknown]
  - Scratch [Unknown]

NARRATIVE: CASE EVENT DATE: 2014
